FAERS Safety Report 12453450 (Version 1)
Quarter: 2016Q2

REPORT INFORMATION
  Report Type: Spontaneous
  Country: RU (occurrence: RU)
  Receive Date: 20160609
  Receipt Date: 20160609
  Transmission Date: 20160815
  Serious: Yes (Other)
  Sender: FDA-Public Use
  Company Number: RU-ABBVIE-16P-251-1648122-00

PATIENT
  Sex: Male

DRUGS (2)
  1. KREON [Suspect]
     Active Substance: PANCRELIPASE
     Indication: PRODUCT USED FOR UNKNOWN INDICATION
     Route: 065
  2. KREON [Suspect]
     Active Substance: PANCRELIPASE
     Route: 065

REACTIONS (2)
  - Abdominal pain [Recovered/Resolved]
  - Gastric cancer [Unknown]
